FAERS Safety Report 8842174 (Version 1)
Quarter: 2012Q4

REPORT INFORMATION
  Report Type: 
  Country: US (occurrence: US)
  Receive Date: 20121016
  Receipt Date: 20121016
  Transmission Date: 20130627
  Serious: Yes (Other)
  Sender: FDA-Public Use
  Company Number: PHEH2012US019950

PATIENT
  Age: 78 Year
  Sex: Male

DRUGS (10)
  1. DIOVAN [Suspect]
     Indication: BLOOD PRESSURE
     Dosage: 160 mg, BID
     Route: 048
  2. LEVOTHROID [Concomitant]
     Dosage: 150 mg, QD
  3. ALDACTONE [Concomitant]
     Dosage: 25 mg, QD
  4. OMEPRAZOLE [Concomitant]
     Dosage: 20 mg, QD
  5. CARVEDILOL [Concomitant]
     Dosage: 6.25 mg, BID
  6. CLONIDINE [Concomitant]
     Dosage: 0.1 mg, BID
  7. FUROSEMIDE [Concomitant]
     Dosage: 40 mg, QD
  8. ATORVASTATIN [Concomitant]
     Dosage: 80 mg, QD
  9. VITAMIN B12 [Concomitant]
     Dosage: UNK UKN, QD
  10. WARFARIN SODIUM [Concomitant]
     Dosage: UNK UKN, QW3

REACTIONS (1)
  - Cerebrovascular accident [Unknown]
